FAERS Safety Report 21863494 (Version 2)
Quarter: 2023Q2

REPORT INFORMATION
  Report Type: Report from Study
  Country: CA (occurrence: CA)
  Receive Date: 20230115
  Receipt Date: 20230413
  Transmission Date: 20230722
  Serious: Yes (Other)
  Sender: FDA-Public Use
  Company Number: CA-BAUSCH-BL-2019-013179

PATIENT
  Age: 53 Year
  Sex: Female
  Weight: 94 kg

DRUGS (4)
  1. SILIQ [Suspect]
     Active Substance: BRODALUMAB
     Indication: Psoriasis
     Dosage: 210MG/1.5 ML, WEEKLY (0, 1, 2 WEEKS)
     Route: 058
     Dates: start: 20190430, end: 201905
  2. SILIQ [Suspect]
     Active Substance: BRODALUMAB
     Dosage: 210MG/1.5 ML, Q2 WEEKS
     Route: 058
     Dates: start: 201905
  3. SILIQ [Suspect]
     Active Substance: BRODALUMAB
     Dosage: 210MG/1.5 ML
     Route: 065
     Dates: start: 2020
  4. BETAMETHASONE\CALCIPOTRIENE [Concomitant]
     Active Substance: BETAMETHASONE\CALCIPOTRIENE
     Indication: Psoriasis
     Dosage: STARTED 10 YEARS PRIOR TO DATE OF 18/NOV/2020
     Dates: start: 2010

REACTIONS (9)
  - Psoriatic arthropathy [Not Recovered/Not Resolved]
  - Inflammatory bowel disease [Unknown]
  - Psoriasis [Not Recovered/Not Resolved]
  - Depression [Not Recovered/Not Resolved]
  - Alopecia [Recovering/Resolving]
  - Adverse drug reaction [Unknown]
  - Injection site erythema [Recovered/Resolved]
  - Treatment failure [Unknown]
  - Drug ineffective for unapproved indication [Unknown]

NARRATIVE: CASE EVENT DATE: 20190101
